FAERS Safety Report 7508596-8 (Version None)
Quarter: 2011Q2

REPORT INFORMATION
  Report Type: 
  Country: None (occurrence: None)
  Receive Date: 20110527
  Receipt Date: 20101108
  Transmission Date: 20111010
  Serious: No
  Sender: FDA-Public Use
  Company Number: A0891323A

PATIENT
  Age: 38 Year
  Sex: Female

DRUGS (2)
  1. SPIRONOLACTONE [Suspect]
  2. FLOLAN [Suspect]
     Route: 065
     Dates: start: 20101105

REACTIONS (1)
  - DYSGEUSIA [None]
